FAERS Safety Report 4966188-9 (Version None)
Quarter: 2006Q2

REPORT INFORMATION
  Report Type: 
  Country: None (occurrence: None)
  Receive Date: 20060407
  Receipt Date: 20060316
  Transmission Date: 20061013
  Serious: Yes (Hospitalization)
  Sender: FDA-Public Use
  Company Number: JP-MERCK-0603USA03022

PATIENT
  Age: 75 Year
  Sex: Male

DRUGS (9)
  1. PEPCID [Suspect]
     Route: 048
     Dates: start: 20050405
  2. NORVASC [Concomitant]
     Route: 048
     Dates: start: 20050405
  3. PROMAC [Concomitant]
     Route: 048
     Dates: start: 20050405
  4. BLOPRESS [Concomitant]
     Route: 048
     Dates: start: 20050405
  5. LASIX [Concomitant]
     Route: 048
     Dates: start: 20050405
  6. CARDENALIN [Concomitant]
     Route: 048
     Dates: start: 20050405
  7. ALDACTONE [Concomitant]
     Route: 048
     Dates: start: 20050405
  8. MAGNESIUM OXIDE [Concomitant]
     Route: 048
     Dates: start: 20050405
  9. ASPIRIN [Concomitant]
     Route: 048
     Dates: start: 20050405

REACTIONS (1)
  - ANAEMIA [None]
